FAERS Safety Report 24908611 (Version 1)
Quarter: 2025Q1

REPORT INFORMATION
  Report Type: Report from Study
  Country: IN (occurrence: IN)
  Receive Date: 20250131
  Receipt Date: 20250131
  Transmission Date: 20250409
  Serious: Yes (Death)
  Sender: ROCHE
  Company Number: IN-ROCHE-10000194607

PATIENT
  Age: 70 Year
  Sex: Male
  Weight: 70 kg

DRUGS (6)
  1. TECENTRIQ [Suspect]
     Active Substance: ATEZOLIZUMAB
     Indication: Hepatic cirrhosis
     Route: 040
     Dates: start: 20241121
  2. TECENTRIQ [Suspect]
     Active Substance: ATEZOLIZUMAB
     Indication: Hepatocellular carcinoma
  3. TECENTRIQ [Suspect]
     Active Substance: ATEZOLIZUMAB
     Indication: Metabolic dysfunction-associated liver disease
  4. AVASTIN [Suspect]
     Active Substance: BEVACIZUMAB
     Indication: Hepatic cirrhosis
     Route: 040
     Dates: start: 20241121
  5. AVASTIN [Suspect]
     Active Substance: BEVACIZUMAB
     Indication: Hepatocellular carcinoma
  6. AVASTIN [Suspect]
     Active Substance: BEVACIZUMAB
     Indication: Metabolic dysfunction-associated liver disease

REACTIONS (3)
  - Somnolence [Fatal]
  - Off label use [Unknown]
  - Hypophagia [Fatal]

NARRATIVE: CASE EVENT DATE: 20250110
